FAERS Safety Report 17519418 (Version 1)
Quarter: 2020Q1

REPORT INFORMATION
  Report Type: Spontaneous
  Country: US (occurrence: US)
  Receive Date: 20200309
  Receipt Date: 20200309
  Transmission Date: 20200409
  Serious: Yes (Other)
  Sender: FDA-Public Use
  Company Number: NVSC2020US064560

PATIENT
  Sex: Female
  Weight: 79.38 kg

DRUGS (3)
  1. TRILEPTAL [Suspect]
     Active Substance: OXCARBAZEPINE
     Indication: TRIGEMINAL NEURALGIA
     Route: 065
  2. CYMBALTA [Suspect]
     Active Substance: DULOXETINE HYDROCHLORIDE
     Indication: TRIGEMINAL NEURALGIA
     Dosage: UNK
     Route: 065
     Dates: start: 201603
  3. LYRICA [Suspect]
     Active Substance: PREGABALIN
     Indication: TRIGEMINAL NEURALGIA
     Dosage: 50 MG, TID (UNTIL 150MG 3 TIMES DAILY PRESCRIBED DOSE REACHED)
     Route: 065
     Dates: start: 201603

REACTIONS (4)
  - Balance disorder [Unknown]
  - Trigeminal neuralgia [Recovering/Resolving]
  - Feeling abnormal [Unknown]
  - Amnesia [Recovering/Resolving]
